FAERS Safety Report 6230287-4 (Version None)
Quarter: 2009Q2

REPORT INFORMATION
  Report Type: 
  Country: None (occurrence: None)
  Receive Date: 20090615
  Receipt Date: 20090608
  Transmission Date: 20091009
  Serious: Yes (Hospitalization)
  Sender: FDA-Public Use
  Company Number: FR-ABBOTT-09P-056-0574651-00

PATIENT
  Sex: Male

DRUGS (4)
  1. ENANTONE 11.25 MG [Suspect]
     Indication: PROSTATE CANCER
     Route: 058
     Dates: start: 20080101, end: 20090201
  2. CASODEX [Concomitant]
     Indication: PROSTATE CANCER
     Dates: start: 20060101, end: 20080101
  3. CYMBALTA [Concomitant]
     Indication: DEPRESSION
     Route: 048
  4. OLMETEC [Concomitant]
     Indication: HYPERTENSION
     Route: 048

REACTIONS (1)
  - CEREBRAL INFARCTION [None]
